FAERS Safety Report 4607269-9 (Version None)
Quarter: 2005Q1

REPORT INFORMATION
  Report Type: 
  Country: None (occurrence: None)
  Receive Date: 20050314
  Receipt Date: 20041008
  Transmission Date: 20050727
  Serious: Yes (Death, Life-Threatening, Hospitalization, Disabling, Other)
  Sender: FDA-Public Use
  Company Number: US-MERCK-0410USA01332

PATIENT
  Age: 75 Year
  Sex: Female
  Weight: 73 kg

DRUGS (14)
  1. VIOXX [Suspect]
     Indication: ARTHRITIS
     Route: 048
     Dates: start: 20010601
  2. VIOXX [Suspect]
     Route: 048
     Dates: start: 20021202, end: 20040820
  3. PAXIL [Concomitant]
     Route: 048
  4. POTASSIUM CHLORIDE [Concomitant]
     Route: 048
  5. PREDNISONE [Concomitant]
     Route: 048
  6. XANAX [Concomitant]
     Route: 048
  7. CORDARONE [Concomitant]
     Route: 048
  8. ASPIRIN [Concomitant]
     Route: 048
  9. LASIX [Concomitant]
     Route: 048
  10. PREVACID [Concomitant]
     Route: 048
  11. SYNTHROID [Concomitant]
     Route: 048
  12. REGLAN [Concomitant]
     Route: 048
  13. SINGULAIR [Concomitant]
     Route: 048
  14. [THERAPY UNSPECIFIED] [Concomitant]
     Route: 048

REACTIONS (27)
  - ANAEMIA [None]
  - ASTHENIA [None]
  - BEZOAR [None]
  - BRONCHITIS [None]
  - CARDIAC FAILURE CONGESTIVE [None]
  - CEREBROVASCULAR ACCIDENT [None]
  - COLLAPSE OF LUNG [None]
  - CORONARY ARTERY ATHEROSCLEROSIS [None]
  - DYSPHAGIA [None]
  - DYSPNOEA [None]
  - EROSIVE OESOPHAGITIS [None]
  - GASTRITIS [None]
  - GASTROINTESTINAL HAEMORRHAGE [None]
  - HYPERTENSION [None]
  - IMMUNOSUPPRESSION [None]
  - LUNG INFILTRATION [None]
  - MALNUTRITION [None]
  - MITRAL VALVE INCOMPETENCE [None]
  - MITRAL VALVE STENOSIS [None]
  - OESOPHAGEAL CANDIDIASIS [None]
  - PARKINSON'S DISEASE [None]
  - PLEURAL EFFUSION [None]
  - PNEUMONIA [None]
  - PULMONARY HYPERTENSION [None]
  - PULMONARY OEDEMA [None]
  - SEPSIS [None]
  - URINARY INCONTINENCE [None]
